FAERS Safety Report 4981499-9 (Version None)
Quarter: 2006Q2

REPORT INFORMATION
  Report Type: 
  Country: None (occurrence: None)
  Receive Date: 20060419
  Receipt Date: 20060330
  Transmission Date: 20061013
  Serious: Yes (Other)
  Sender: FDA-Public Use
  Company Number: US200603007064

PATIENT
  Age: 56 Year
  Sex: Male

DRUGS (2)
  1. HUMULIN R [Suspect]
     Indication: DIABETES MELLITUS
     Dosage: 20 U, 2/D
     Dates: start: 19870101
  2. HUMULIN L [Suspect]
     Indication: DIABETES MELLITUS
     Dosage: 30 U/ 2/D
     Dates: start: 19870101

REACTIONS (10)
  - BLOOD GLUCOSE DECREASED [None]
  - DEPRESSED LEVEL OF CONSCIOUSNESS [None]
  - DEPRESSION [None]
  - FALL [None]
  - HYPERTENSION [None]
  - HYPOKINESIA [None]
  - MUSCLE DISORDER [None]
  - NERVE INJURY [None]
  - OEDEMA PERIPHERAL [None]
  - ROAD TRAFFIC ACCIDENT [None]
